FAERS Safety Report 13629246 (Version 1)
Quarter: 2017Q2

REPORT INFORMATION
  Report Type: Report from Study
  Country: US (occurrence: US)
  Receive Date: 20170608
  Receipt Date: 20170608
  Transmission Date: 20170830
  Serious: Yes (Other)
  Sender: FDA-Public Use
  Company Number: US-ENDO PHARMACEUTICALS INC-2017-003178

PATIENT
  Age: 50 Year
  Sex: Male
  Weight: 95.24 kg

DRUGS (3)
  1. XIAFLEX [Suspect]
     Active Substance: COLLAGENASE CLOSTRIDIUM HISTOLYTICUM
     Indication: PEYRONIE^S DISEASE
     Dosage: UNK, CYCLE 1, INJECTION 2
     Route: 026
     Dates: start: 20170424
  2. XIAFLEX [Suspect]
     Active Substance: COLLAGENASE CLOSTRIDIUM HISTOLYTICUM
     Dosage: UNK, CYCLE 1, INJECTION 1
     Route: 026
     Dates: start: 20170420
  3. LISINOPRIL. [Concomitant]
     Active Substance: LISINOPRIL
     Indication: HYPERTENSION
     Dosage: 10 MG, DAILY
     Route: 065
     Dates: start: 2011

REACTIONS (2)
  - Corpora cavernosa surgery [Recovered/Resolved]
  - Fracture of penis [Recovering/Resolving]

NARRATIVE: CASE EVENT DATE: 201705
